FAERS Safety Report 8440003 (Version 3)
Quarter: 2012Q4

REPORT INFORMATION
  Report Type: 
  Country: US (occurrence: US)
  Receive Date: 20120305
  Receipt Date: 20121227
  Transmission Date: 20130627
  Serious: Yes (Other)
  Sender: FDA-Public Use
  Company Number: US-PFIZER INC-2012054121

PATIENT
  Age: 23 Year
  Sex: Female
  Weight: 62.1 kg

DRUGS (1)
  1. LO/OVRAL-28 [Suspect]
     Indication: BIRTH CONTROL
     Dosage: UNK
     Dates: start: 201108, end: 20120228

REACTIONS (3)
  - Product quality issue [Unknown]
  - Drug ineffective [Unknown]
  - Unintended pregnancy [Unknown]
